FAERS Safety Report 4753568-X (Version None)
Quarter: 2005Q3

REPORT INFORMATION
  Report Type: 
  Country: None (occurrence: None)
  Receive Date: 20050824
  Receipt Date: 20050811
  Transmission Date: 20060218
  Serious: Yes (Hospitalization)
  Sender: FDA-Public Use
  Company Number: 2005113676

PATIENT
  Age: 90 Year
  Sex: Female

DRUGS (19)
  1. SPIRONOLACTONE [Suspect]
     Indication: ILL-DEFINED DISORDER
     Dosage: HALF TABLET (25 MG, QD), ORAL
     Route: 048
  2. ACENOCOUMAROL (ACENOCOUMAROL) [Concomitant]
  3. CARBASALATE CALCIUM (CARBASALATE CALCIUM) [Concomitant]
  4. INSULIN (INSULIN) [Concomitant]
  5. BUMETANIDE [Concomitant]
  6. FUROSEMIDE [Concomitant]
  7. FOSINOPRIL SODIUM [Concomitant]
  8. ISOSORBIDE DINITRATE [Concomitant]
  9. PAROXETINE HCL [Concomitant]
  10. TEMAZEPAM [Concomitant]
  11. OXAZEPAM [Concomitant]
  12. PIPAMPERONE (PIPAMPERONE) [Concomitant]
  13. LACTITOL (LACTITOL) [Concomitant]
  14. LOPERAMIDE HCL [Concomitant]
  15. ALLOPURINOL [Concomitant]
  16. PARACETAMOL (PARACETAMOL) [Concomitant]
  17. DICLOFENAC SODIUM [Concomitant]
  18. IPRATROPIUM BROMIDE [Concomitant]
  19. CETIRIZINE HCL [Concomitant]

REACTIONS (6)
  - DELIRIUM [None]
  - DISORIENTATION [None]
  - DISTURBANCE IN ATTENTION [None]
  - HALLUCINATION, VISUAL [None]
  - SCREAMING [None]
  - SLEEP DISORDER [None]
